FAERS Safety Report 9203172 (Version 1)
Quarter: 2013Q1

REPORT INFORMATION
  Report Type: Spontaneous
  Country: US (occurrence: None)
  Receive Date: 20120709
  Receipt Date: 20120709
  Transmission Date: 20140127
  Serious: Yes (Other)
  Sender: FDA-Public Use
  Company Number: PHHY2010US77895

PATIENT
  Age: 59 Year
  Sex: Male

DRUGS (2)
  1. GLEEVEC (IMATINIB) UNKNOWN [Suspect]
     Indication: NEOPLASM MALIGNANT
     Route: 048
     Dates: start: 20101004
  2. SUTENT (SUNITINIB MALATE) [Concomitant]

REACTIONS (6)
  - White blood cell count decreased [None]
  - Weight increased [None]
  - Blood glucose decreased [None]
  - Haematocrit abnormal [None]
  - Vomiting [None]
  - Drug ineffective [None]
